FAERS Safety Report 11944192 (Version 1)
Quarter: 2016Q1

REPORT INFORMATION
  Report Type: Spontaneous
  Country: US (occurrence: US)
  Receive Date: 20160125
  Receipt Date: 20160125
  Transmission Date: 20160526
  Serious: No
  Sender: FDA-Public Use
  Company Number: US-BAYER-2016-014003

PATIENT
  Age: 85 Year
  Sex: Female

DRUGS (3)
  1. LINZESS [Concomitant]
     Active Substance: LINACLOTIDE
  2. MIRALAX [Suspect]
     Active Substance: POLYETHYLENE GLYCOL 3350
     Indication: CONSTIPATION
     Dosage: ABOUT 2 YEARS AGO
  3. MIRALAX [Suspect]
     Active Substance: POLYETHYLENE GLYCOL 3350
     Indication: CONSTIPATION
     Dosage: UNK

REACTIONS (2)
  - Drug ineffective [None]
  - Product use issue [None]
